FAERS Safety Report 11101615 (Version 1)
Quarter: 2015Q2

REPORT INFORMATION
  Report Type: Spontaneous
  Country: JP (occurrence: JP)
  Receive Date: 20150508
  Receipt Date: 20150508
  Transmission Date: 20150821
  Serious: Yes (Other)
  Sender: FDA-Public Use
  Company Number: PHJP2015JP004736

PATIENT

DRUGS (1)
  1. PURSENNIDE TAB [Suspect]
     Active Substance: SENNOSIDES A AND B
     Indication: CONSTIPATION
     Dosage: UNK, Q72H
     Route: 048

REACTIONS (2)
  - Herpes zoster [Unknown]
  - Inappropriate schedule of drug administration [Unknown]
